FAERS Safety Report 4844864-6 (Version None)
Quarter: 2005Q4

REPORT INFORMATION
  Report Type: 
  Country: None (occurrence: None)
  Receive Date: 20051205
  Receipt Date: 20051129
  Transmission Date: 20060501
  Serious: Yes (Hospitalization)
  Sender: FDA-Public Use
  Company Number: DE-JNJFOC-20051200126

PATIENT
  Age: 10 Week
  Sex: Male

DRUGS (2)
  1. PARACETAMOL [Suspect]
     Route: 054
  2. PARACETAMOL [Suspect]
     Route: 054

REACTIONS (3)
  - DEPRESSED LEVEL OF CONSCIOUSNESS [None]
  - INCORRECT DRUG DOSAGE FORM ADMINISTERED [None]
  - OVERDOSE [None]
